FAERS Safety Report 7600876-0 (Version None)
Quarter: 2011Q3

REPORT INFORMATION
  Report Type: 
  Country: None (occurrence: None)
  Receive Date: 20110711
  Receipt Date: 20110705
  Transmission Date: 20111222
  Serious: Yes (Hospitalization, Other)
  Sender: FDA-Public Use
  Company Number: US-ELI_LILLY_AND_COMPANY-US201005000605

PATIENT
  Sex: Female
  Weight: 94.331 kg

DRUGS (4)
  1. BYETTA [Suspect]
     Dosage: UNK
     Dates: start: 20050909, end: 20080411
  2. GLIPIZIDE [Concomitant]
     Indication: DIABETES MELLITUS
     Dosage: UNK
     Dates: start: 19830501
  3. METFORMIN HCL [Concomitant]
     Indication: DIABETES MELLITUS
     Dosage: UNK
  4. ACTOS [Concomitant]
     Dosage: UNK

REACTIONS (2)
  - RENAL FAILURE [None]
  - PANCREATITIS [None]
